FAERS Safety Report 4301396-1 (Version None)
Quarter: 2004Q1

REPORT INFORMATION
  Report Type: 
  Country: None (occurrence: None)
  Receive Date: 20040223
  Receipt Date: 20031105
  Transmission Date: 20041129
  Serious: No
  Sender: FDA-Public Use
  Company Number: US-GLAXOSMITHKLINE-A0433128A

PATIENT
  Age: 61 Year
  Sex: Female

DRUGS (12)
  1. NAVELBINE [Suspect]
     Route: 042
     Dates: start: 20030501, end: 20030701
  2. OXYCONTIN [Concomitant]
  3. WARFARIN SODIUM [Concomitant]
  4. THEOPHYLLINE [Concomitant]
  5. ADVAIR DISKUS 100/50 [Concomitant]
  6. ATROVENT [Concomitant]
  7. PREDNISONE [Concomitant]
  8. LASIX [Concomitant]
  9. DYAZIDE [Concomitant]
  10. POTASSIUM [Concomitant]
  11. DALMANE [Concomitant]
  12. PREVACID [Concomitant]

REACTIONS (1)
  - NEOPLASM PROGRESSION [None]
